FAERS Safety Report 22130869 (Version 1)
Quarter: 2023Q1

REPORT INFORMATION
  Report Type: Spontaneous
  Country: CN (occurrence: CN)
  Receive Date: 20230323
  Receipt Date: 20230323
  Transmission Date: 20230418
  Serious: Yes (Hospitalization, Other)
  Sender: FDA-Public Use
  Company Number: CN-HALEON-CNCH2023APC012452

PATIENT

DRUGS (2)
  1. IBUPROFEN [Suspect]
     Active Substance: IBUPROFEN
     Indication: COVID-19
     Dosage: 0.30 G, BID
     Route: 048
     Dates: start: 20221220, end: 20221225
  2. GAN KANG [Concomitant]
     Indication: COVID-19
     Dosage: 1 DF, BID
     Route: 048
     Dates: start: 20221220, end: 20221225

REACTIONS (21)
  - Gastrointestinal haemorrhage [Recovering/Resolving]
  - Upper gastrointestinal haemorrhage [Recovering/Resolving]
  - General physical health deterioration [Recovering/Resolving]
  - Skin discolouration [Recovering/Resolving]
  - Mucosal disorder [Recovering/Resolving]
  - Vomiting [Recovering/Resolving]
  - Asthenia [Recovering/Resolving]
  - Decreased appetite [Recovering/Resolving]
  - Dizziness [Recovering/Resolving]
  - Hyperhidrosis [Recovering/Resolving]
  - Palpitations [Recovering/Resolving]
  - Cough [Recovering/Resolving]
  - Productive cough [Recovering/Resolving]
  - Haematemesis [Recovering/Resolving]
  - Melaena [Recovered/Resolved]
  - Faeces discoloured [Recovering/Resolving]
  - Diarrhoea [Recovering/Resolving]
  - Gastric ulcer [Recovering/Resolving]
  - Duodenogastric reflux [Recovering/Resolving]
  - Duodenal ulcer [Recovering/Resolving]
  - Product use in unapproved indication [Unknown]

NARRATIVE: CASE EVENT DATE: 20221201
